FAERS Safety Report 11696824 (Version 1)
Quarter: 2015Q4

REPORT INFORMATION
  Report Type: Spontaneous
  Country: JP (occurrence: JP)
  Receive Date: 20151104
  Receipt Date: 20151104
  Transmission Date: 20160304
  Serious: Yes (Hospitalization, Other)
  Sender: FDA-Public Use
  Company Number: JP-SA-2015SA173669

PATIENT
  Age: 71 Year
  Sex: Male

DRUGS (4)
  1. XELODA [Concomitant]
     Active Substance: CAPECITABINE
     Dosage: DAILY ADMINISTRATION, TOTAL OF 2 CYCLES
  2. ELPLAT [Suspect]
     Active Substance: OXALIPLATIN
     Indication: COLON CANCER
     Route: 041
  3. AVASTIN [Concomitant]
     Active Substance: BEVACIZUMAB
     Indication: COLON CANCER
     Dosage: 500 MG/BODY, TOTAL OF 2 CYCLES
  4. ELPLAT [Suspect]
     Active Substance: OXALIPLATIN
     Indication: COLON CANCER
     Route: 041

REACTIONS (1)
  - Deep vein thrombosis [Recovering/Resolving]
